FAERS Safety Report 7583949-0 (Version None)
Quarter: 2011Q2

REPORT INFORMATION
  Report Type: 
  Country: None (occurrence: None)
  Receive Date: 20110623
  Receipt Date: 20110608
  Transmission Date: 20111010
  Serious: Yes (Hospitalization)
  Sender: FDA-Public Use
  Company Number: 2011MA006939

PATIENT
  Age: 39 Year
  Sex: Female

DRUGS (7)
  1. HALOPERIDOL [Suspect]
     Indication: BIPOLAR DISORDER
     Dosage: 7 MG, QD
  2. CLOZAPINE [Concomitant]
  3. DIAZEPAM [Suspect]
     Indication: BIPOLAR DISORDER
     Dosage: 10 MG, QD
  4. LEVOTHYROXINE SODIUM [Concomitant]
  5. PIPAMPERIDONE [Concomitant]
  6. LITHIUM [Concomitant]
  7. VALPROIC ACID [Concomitant]

REACTIONS (13)
  - NEGATIVISM [None]
  - NEUROLEPTIC MALIGNANT SYNDROME [None]
  - ABDOMINAL DISTENSION [None]
  - GENERAL PHYSICAL HEALTH DETERIORATION [None]
  - DELUSION OF REFERENCE [None]
  - LEUKOCYTOSIS [None]
  - PSYCHOMOTOR HYPERACTIVITY [None]
  - MOBILITY DECREASED [None]
  - AGGRESSION [None]
  - MUTISM [None]
  - HYPERHIDROSIS [None]
  - AFFECT LABILITY [None]
  - GASTROINTESTINAL HYPOMOTILITY [None]
